FAERS Safety Report 9809310 (Version 1)
Quarter: 2014Q1

REPORT INFORMATION
  Report Type: Spontaneous
  Country: US (occurrence: US)
  Receive Date: 20140110
  Receipt Date: 20140110
  Transmission Date: 20141002
  Serious: No
  Sender: FDA-Public Use
  Company Number: US-MALLINCKRODT-T201303846

PATIENT
  Age: 41 Year
  Sex: Female

DRUGS (3)
  1. OPTIRAY [Suspect]
     Indication: COMPUTERISED TOMOGRAM
     Dosage: 95 ML, SINGLE, 2ML/SEC
     Route: 042
     Dates: start: 20130719, end: 20130719
  2. METHYLPREDISOLONE [Concomitant]
     Indication: PREMEDICATION
     Dosage: 32 MG, 2 DOSES (12 HRS AND 2 HRS PRIOR TO SCAN)
     Dates: start: 201307, end: 201307
  3. BENADRYL                           /00000402/ [Concomitant]
     Indication: PREMEDICATION
     Dosage: 50 MG, 1 HOUR PRIOR TO SCAN
     Route: 048
     Dates: start: 201307, end: 201307

REACTIONS (3)
  - Wheezing [Recovered/Resolved]
  - Chest discomfort [Recovered/Resolved]
  - Urticaria [Recovered/Resolved]
